FAERS Safety Report 7030265-1 (Version None)
Quarter: 2010Q4

REPORT INFORMATION
  Report Type: 
  Country: None (occurrence: None)
  Receive Date: 20101006
  Receipt Date: 20100827
  Transmission Date: 20110411
  Serious: Yes (Hospitalization, Other)
  Sender: FDA-Public Use
  Company Number: US-BAYER-201013419NA

PATIENT
  Age: 21 Year
  Sex: Female
  Weight: 86 kg

DRUGS (28)
  1. YASMIN [Suspect]
     Indication: CONTRACEPTION
     Route: 048
     Dates: start: 20080926, end: 20081024
  2. OCELLA [Suspect]
     Indication: CONTRACEPTION
     Route: 048
     Dates: start: 20081024, end: 20090227
  3. METHOTREXATE [Concomitant]
  4. PRENATAL VITAMINS [Concomitant]
  5. VENTOLIN [Concomitant]
  6. AMBIEN [Concomitant]
  7. AMITRIPTYLINE [Concomitant]
  8. OXYCODONE HCL AND ACETAMINOPHEN [Concomitant]
  9. FOLIC ACID [Concomitant]
  10. HYDROMORPHONE HCL [Concomitant]
  11. REQUIP [Concomitant]
  12. SINGULAIR [Concomitant]
  13. TOPAMAX [Concomitant]
  14. VERAPAMIL [Concomitant]
  15. BROMFENAC [Concomitant]
  16. ZOFRAN [Concomitant]
  17. PROMETHAZINE [Concomitant]
  18. EFFEXOR XR [Concomitant]
  19. RITUXAN [Concomitant]
  20. VANCOMYCIN [Concomitant]
  21. ARIXTRA [Concomitant]
  22. PERCOCET [Concomitant]
  23. ELAVIL [Concomitant]
  24. ERYTHROMYCIN [Concomitant]
     Indication: GASTROINTESTINAL MOTILITY DISORDER
  25. DEMEROL [Concomitant]
  26. POTASSIUM [Concomitant]
  27. DILAUDID [Concomitant]
  28. BENADRYL [Concomitant]

REACTIONS (3)
  - CHOLECYSTITIS CHRONIC [None]
  - GALLBLADDER CHOLESTEROLOSIS [None]
  - SUBCLAVIAN VEIN THROMBOSIS [None]
